FAERS Safety Report 18905722 (Version 1)
Quarter: 2021Q1

REPORT INFORMATION
  Report Type: Spontaneous
  Country: US (occurrence: US)
  Receive Date: 20210217
  Receipt Date: 20210217
  Transmission Date: 20210420
  Serious: Yes (Other)
  Sender: FDA-Public Use
  Company Number: US-NOVOPROD-787217

PATIENT
  Age: 66 Year
  Sex: Female

DRUGS (1)
  1. LEVEMIR [Suspect]
     Active Substance: INSULIN DETEMIR
     Indication: PRODUCT USED FOR UNKNOWN INDICATION
     Dosage: 30 IU, BID
     Route: 065
     Dates: start: 20110101, end: 20210101

REACTIONS (5)
  - Eye infection [Unknown]
  - Blood glucose increased [Unknown]
  - Intentional dose omission [Unknown]
  - Cataract [Recovered/Resolved]
  - Eye injury [Unknown]

NARRATIVE: CASE EVENT DATE: 20170101
